FAERS Safety Report 19079837 (Version 1)
Quarter: 2021Q2

REPORT INFORMATION
  Report Type: Spontaneous
  Country: MA (occurrence: MA)
  Receive Date: 20210401
  Receipt Date: 20210401
  Transmission Date: 20210717
  Serious: Yes (Life-Threatening, Hospitalization, Other)
  Sender: FDA-Public Use
  Company Number: MA-LUPIN PHARMACEUTICALS INC.-2021-03916

PATIENT
  Age: 62 Year
  Sex: Female

DRUGS (4)
  1. CHLOROQUINE. [Suspect]
     Active Substance: CHLOROQUINE
     Indication: CUTANEOUS LUPUS ERYTHEMATOSUS
     Dosage: UNK, HAD BEEN RECEIVING FOR FOUR YEARS
     Route: 065
  2. HYDROXYCHLOROQUINE [Suspect]
     Active Substance: HYDROXYCHLOROQUINE
     Indication: SJOGREN^S SYNDROME
  3. HYDROXYCHLOROQUINE [Suspect]
     Active Substance: HYDROXYCHLOROQUINE
     Indication: CUTANEOUS LUPUS ERYTHEMATOSUS
     Dosage: UNK, HAD BEEN RECEIVING FOR 10 MONTHS
     Route: 065
  4. CHLOROQUINE. [Suspect]
     Active Substance: CHLOROQUINE
     Indication: SJOGREN^S SYNDROME

REACTIONS (2)
  - Cardiotoxicity [Unknown]
  - Atrioventricular block complete [Unknown]
